FAERS Safety Report 14425689 (Version 2)
Quarter: 2018Q1

REPORT INFORMATION
  Report Type: Spontaneous
  Country: JP (occurrence: JP)
  Receive Date: 20180123
  Receipt Date: 20180307
  Transmission Date: 20180509
  Serious: Yes (Life-Threatening, Hospitalization)
  Sender: FDA-Public Use
  Company Number: JP-ELI_LILLY_AND_COMPANY-JP201801009612

PATIENT
  Age: 27 Year
  Sex: Female
  Weight: 44 kg

DRUGS (6)
  1. VALPROATE NA [Concomitant]
     Active Substance: VALPROATE SODIUM
     Dosage: 200 MG, DAILY
     Route: 048
     Dates: start: 20171002
  2. NOVAMIN                            /00013301/ [Concomitant]
     Active Substance: PROCHLORPERAZINE
     Dosage: 5 MG, DAILY
     Route: 048
     Dates: start: 20171109, end: 20171115
  3. LYRICA [Concomitant]
     Active Substance: PREGABALIN
  4. DULOXETINE HYDROCHLORIDE. [Suspect]
     Active Substance: DULOXETINE HYDROCHLORIDE
     Indication: ARTHRALGIA
     Dosage: 20 MG, DAILY
     Route: 048
     Dates: start: 20171109, end: 20171116
  5. ABILIFY [Concomitant]
     Active Substance: ARIPIPRAZOLE
     Dosage: 12 MG, DAILY
     Route: 048
     Dates: start: 20171002
  6. CELECOX [Concomitant]
     Active Substance: CELECOXIB
     Dosage: UNK
     Route: 048

REACTIONS (1)
  - Suicide attempt [Recovering/Resolving]

NARRATIVE: CASE EVENT DATE: 20171116
